FAERS Safety Report 23955397 (Version 1)
Quarter: 2024Q2

REPORT INFORMATION
  Report Type: Spontaneous
  Country: DE (occurrence: DE)
  Receive Date: 20240610
  Receipt Date: 20240610
  Transmission Date: 20240716
  Serious: Yes (Congenital Anomaly, Other)
  Sender: FDA-Public Use
  Company Number: DE-EMBRYOTOX-202121337

PATIENT
  Age: 1 Day
  Sex: Male
  Weight: 3.4 kg

DRUGS (2)
  1. AUBAGIO [Suspect]
     Active Substance: TERIFLUNOMIDE
     Indication: Multiple sclerosis
     Dosage: 14 MG, QD
     Dates: start: 20211023, end: 20211222
  2. COMIRNATY [Concomitant]
     Dosage: UNK

REACTIONS (3)
  - Cleft lip and palate [Unknown]
  - Paternal exposure timing unspecified [Unknown]
  - Foetal exposure during pregnancy [Unknown]

NARRATIVE: CASE EVENT DATE: 20220701
